FAERS Safety Report 15206846 (Version 3)
Quarter: 2018Q3

REPORT INFORMATION
  Report Type: Report from Study
  Country: FR (occurrence: FR)
  Receive Date: 20180727
  Receipt Date: 20180808
  Transmission Date: 20181010
  Serious: Yes (Other)
  Sender: FDA-Public Use
  Company Number: FR-ROCHE-2101304

PATIENT
  Age: 37 Year
  Sex: Female
  Weight: 53.4 kg

DRUGS (10)
  1. METHYLPREDNISOLONE. [Suspect]
     Active Substance: METHYLPREDNISOLONE
     Indication: PREMEDICATION
     Dosage: DATE OF MOST RECENT DOSE OF METHYLPREDNISOLONE PRIOR TO SERIOUS ADVERSE EVENT (SAE) : 02/FEB/2018?ON
     Route: 042
     Dates: start: 20180118
  2. IVERMECTINE [Concomitant]
     Route: 061
  3. LEVOTHYROX [Concomitant]
     Active Substance: LEVOTHYROXINE
     Route: 048
  4. ATARAX [Concomitant]
     Active Substance: HYDROXYZINE HYDROCHLORIDE
     Route: 048
     Dates: start: 20180202, end: 20180202
  5. PARACETAMOL [Concomitant]
     Active Substance: ACETAMINOPHEN
     Route: 048
     Dates: start: 20180118, end: 20180118
  6. PARACETAMOL [Concomitant]
     Active Substance: ACETAMINOPHEN
     Route: 048
     Dates: start: 20180202, end: 20180202
  7. ATARAX [Concomitant]
     Active Substance: HYDROXYZINE HYDROCHLORIDE
     Route: 048
     Dates: start: 20180118, end: 20180118
  8. UVEDOSE [Concomitant]
     Active Substance: CHOLECALCIFEROL
  9. OCRELIZUMAB. [Suspect]
     Active Substance: OCRELIZUMAB
     Indication: RELAPSING-REMITTING MULTIPLE SCLEROSIS
     Dosage: DATE OF MOST RECENT DOSE OF OCRELIZUMAB PRIOR TO SERIOUS ADVERSE EVENT (SAE) : 02/FEB/2018?TWO 300 M
     Route: 042
     Dates: start: 20180118
  10. FLUCONAZOLE. [Concomitant]
     Active Substance: FLUCONAZOLE
     Indication: ORAL FUNGAL INFECTION
     Route: 048
     Dates: start: 20180514, end: 20180615

REACTIONS (1)
  - Breast cancer [Not Recovered/Not Resolved]

NARRATIVE: CASE EVENT DATE: 20180301
